FAERS Safety Report 7018286-6 (Version None)
Quarter: 2010Q3

REPORT INFORMATION
  Report Type: 
  Country: None (occurrence: None)
  Receive Date: 20100928
  Receipt Date: 20100927
  Transmission Date: 20110219
  Serious: Yes (Hospitalization)
  Sender: FDA-Public Use
  Company Number: US-WYE-H16430410

PATIENT
  Age: 67 Year
  Sex: Male

DRUGS (6)
  1. TEMSIROLIMUS [Suspect]
     Indication: LARYNGEAL CANCER
     Dosage: DOSE ESCALATION SCHEME ON DAYS 1, 8, AND 15 OF A 28-DAY CYCLE
     Route: 042
     Dates: start: 20100715
  2. TEMSIROLIMUS [Suspect]
     Indication: HEAD AND NECK CANCER
     Route: 042
     Dates: start: 20100715, end: 20100715
  3. CARBOPLATIN [Suspect]
     Indication: LARYNGEAL CANCER
     Dosage: AUC 5 ON DAY 1, 400 MG TOTAL DOSE ADMINISTERED ON 15-JUL-2010
     Route: 042
     Dates: start: 20100715, end: 20100715
  4. CARBOPLATIN [Suspect]
     Indication: HEAD AND NECK CANCER
  5. TAXOL [Suspect]
     Indication: LARYNGEAL CANCER
     Dosage: 80 MG/M^2 DAYS 1, 8, AND 15, TOTAL DOSE ADMINISTERED 150MG 15-JUL-2010 AND 150MG 22-JUL-2010
     Route: 042
     Dates: start: 20100715, end: 20100722
  6. TAXOL [Suspect]
     Indication: HEAD AND NECK CANCER

REACTIONS (14)
  - ABDOMINAL PAIN [None]
  - BONE MARROW FAILURE [None]
  - DIARRHOEA [None]
  - FEBRILE NEUTROPENIA [None]
  - HAEMOGLOBIN ABNORMAL [None]
  - HYPOALBUMINAEMIA [None]
  - HYPOPHOSPHATAEMIA [None]
  - NAUSEA [None]
  - ORAL PAIN [None]
  - OROPHARYNGEAL PAIN [None]
  - PLATELET COUNT ABNORMAL [None]
  - RECTAL HAEMORRHAGE [None]
  - VOMITING [None]
  - WHITE BLOOD CELL COUNT ABNORMAL [None]
